FAERS Safety Report 6439699-7 (Version None)
Quarter: 2009Q4

REPORT INFORMATION
  Report Type: 
  Country: None (occurrence: None)
  Receive Date: 20091113
  Receipt Date: 20091105
  Transmission Date: 20100525
  Serious: Yes (Other)
  Sender: FDA-Public Use
  Company Number: GXKR2009GB12205

PATIENT
  Age: 34 Year
  Sex: Female
  Weight: 70.25 kg

DRUGS (3)
  1. METRONIDAZOLE (NGX) [Suspect]
     Indication: INFECTION
     Dosage: 200 MG, UNK
     Route: 048
     Dates: start: 20091005, end: 20091009
  2. AMOXICILLIN [Concomitant]
     Indication: LOWER RESPIRATORY TRACT INFECTION
     Dosage: 1000 MG, UNK
     Route: 048
     Dates: start: 20090817, end: 20090821
  3. NORDETTE-28 [Concomitant]
     Indication: CONTRACEPTION
     Dosage: UNK
     Route: 048
     Dates: start: 19980101

REACTIONS (1)
  - ERYTHEMA MULTIFORME [None]
